FAERS Safety Report 8366858-9 (Version None)
Quarter: 2012Q2

REPORT INFORMATION
  Report Type: 
  Country: None (occurrence: None)
  Receive Date: 20120517
  Receipt Date: 20120507
  Transmission Date: 20120825
  Serious: Yes (Other)
  Sender: FDA-Public Use
  Company Number: US-JNJFOC-20120203274

PATIENT
  Sex: Female

DRUGS (2)
  1. INTELENCE [Suspect]
     Indication: HIV INFECTION
     Route: 065
  2. TRUVADA [Suspect]
     Indication: HIV INFECTION
     Route: 065

REACTIONS (1)
  - HEPATOTOXICITY [None]
